FAERS Safety Report 6143657-X (Version None)
Quarter: 2009Q2

REPORT INFORMATION
  Report Type: 
  Country: None (occurrence: None)
  Receive Date: 20090403
  Receipt Date: 20090330
  Transmission Date: 20091009
  Serious: Yes (Hospitalization)
  Sender: FDA-Public Use
  Company Number: US-KINGPHARMUSA00001-K200900359

PATIENT
  Age: 83 Year
  Sex: Female

DRUGS (11)
  1. ALTACE [Suspect]
     Indication: HYPERTENSION
     Dosage: 2.5 MG, QD
     Route: 048
     Dates: start: 20090102
  2. LOPRIL                             /00498401/ [Suspect]
     Indication: HYPERTENSION
     Dosage: 50 MG, QD
     Route: 048
     Dates: end: 20090116
  3. DIFFU K [Suspect]
     Indication: HYPOKALAEMIA
     Dosage: 3600 MG, QD
     Route: 048
     Dates: start: 20090104, end: 20090116
  4. AMLODIPINE BESYLATE [Suspect]
  5. FUROSEMIDE [Concomitant]
  6. DIGOXIN [Concomitant]
  7. DIAMICRON [Concomitant]
  8. COLCHIMAX                          /00728901/ [Concomitant]
  9. CARDENSIEL [Suspect]
     Indication: CARDIAC FAILURE
     Dosage: UNK
     Dates: start: 20090102
  10. PREVISCAN                          /00261401/ [Concomitant]
     Indication: CARDIAC FAILURE
     Dosage: UNK
     Route: 048
     Dates: start: 20090102
  11. CAPTOPRIL [Concomitant]

REACTIONS (4)
  - ATRIOVENTRICULAR BLOCK [None]
  - HYPERKALAEMIA [None]
  - OVERDOSE [None]
  - RENAL FAILURE ACUTE [None]
